FAERS Safety Report 25478215 (Version 1)
Quarter: 2025Q2

REPORT INFORMATION
  Report Type: Spontaneous
  Country: US (occurrence: None)
  Receive Date: 20250624
  Receipt Date: 20250624
  Transmission Date: 20250717
  Serious: Yes (Hospitalization)
  Sender: FDA-CTU
  Company Number: None

PATIENT
  Age: 72 Year
  Sex: Female

DRUGS (2)
  1. LENALIDOMIDE [Suspect]
     Active Substance: LENALIDOMIDE
     Indication: Plasma cell myeloma
     Dosage: FREQUENCY : DAILY;?
     Route: 048
     Dates: start: 20181102
  2. GLIPIZIDE [Suspect]
     Active Substance: GLIPIZIDE

REACTIONS (6)
  - Anaemia [None]
  - Neutropenia [None]
  - Decreased appetite [None]
  - Blood insulin abnormal [None]
  - Pyrexia [None]
  - Infection masked [None]

NARRATIVE: CASE EVENT DATE: 20250618
